FAERS Safety Report 23151493 (Version 2)
Quarter: 2023Q4

REPORT INFORMATION
  Report Type: Report from Study
  Country: US (occurrence: US)
  Receive Date: 20231107
  Receipt Date: 20231218
  Transmission Date: 20240109
  Serious: Yes (Hospitalization, Other)
  Sender: FDA-Public Use
  Company Number: US-ABBVIE-5483263

PATIENT
  Sex: Female

DRUGS (2)
  1. VENCLEXTA [Suspect]
     Active Substance: VENETOCLAX
     Indication: Acute myeloid leukaemia
     Dosage: LAST ADMIN DATE WAS AUG 2023
     Route: 048
     Dates: start: 202308
  2. VENCLEXTA [Suspect]
     Active Substance: VENETOCLAX
     Indication: Acute myeloid leukaemia
     Route: 048
     Dates: start: 202308

REACTIONS (4)
  - Asthenia [Unknown]
  - Haemorrhage [Unknown]
  - Productive cough [Unknown]
  - Constipation [Unknown]

NARRATIVE: CASE EVENT DATE: 20230101
